FAERS Safety Report 19184980 (Version 1)
Quarter: 2021Q2

REPORT INFORMATION
  Report Type: Spontaneous
  Country: US (occurrence: US)
  Receive Date: 20210427
  Receipt Date: 20210427
  Transmission Date: 20210717
  Serious: No
  Sender: FDA-Public Use
  Company Number: US-009507513-2104USA007129

PATIENT
  Sex: Female

DRUGS (1)
  1. DIFICID [Suspect]
     Active Substance: FIDAXOMICIN
     Indication: CLOSTRIDIUM DIFFICILE IMMUNISATION
     Dosage: 200 MILLIGRAM, BID
     Route: 048
     Dates: start: 20210409

REACTIONS (2)
  - Product use issue [Unknown]
  - Therapeutic product effect incomplete [Recovering/Resolving]
